FAERS Safety Report 11630764 (Version 1)
Quarter: 2015Q4

REPORT INFORMATION
  Report Type: Spontaneous
  Country: US (occurrence: US)
  Receive Date: 20151014
  Receipt Date: 20151014
  Transmission Date: 20160304
  Serious: No
  Sender: FDA-Public Use
  Company Number: US-INDIVIOR-RB-081964-2015

PATIENT
  Sex: Female

DRUGS (1)
  1. SUBOXONE [Suspect]
     Active Substance: BUPRENORPHINE HYDROCHLORIDE\NALOXONE HYDROCHLORIDE
     Indication: DRUG DEPENDENCE
     Dosage: TOOK 8MG FILM; 1/2 IN MORNING AND 1/2 IN AFTERNOON
     Route: 065

REACTIONS (5)
  - Product preparation error [Unknown]
  - Intentional product misuse [Unknown]
  - Swollen tongue [Unknown]
  - Glossodynia [Unknown]
  - Tongue discolouration [Unknown]
